FAERS Safety Report 6297462-4 (Version None)
Quarter: 2009Q3

REPORT INFORMATION
  Report Type: 
  Country: None (occurrence: None)
  Receive Date: 20090805
  Receipt Date: 20090728
  Transmission Date: 20100115
  Serious: Yes (Death, Life-Threatening, Other)
  Sender: FDA-Public Use
  Company Number: JP-BAYER-200911612BYL

PATIENT
  Age: 64 Year
  Sex: Male
  Weight: 45 kg

DRUGS (11)
  1. NEXAVAR [Suspect]
     Indication: RENAL CELL CARCINOMA STAGE IV
     Dosage: TOTAL DAILY DOSE: 800 MG  UNIT DOSE: 200 MG
     Route: 048
     Dates: start: 20080714, end: 20080725
  2. NOVOLIN N [Concomitant]
     Route: 058
  3. NOVOLIN R [Concomitant]
     Route: 058
  4. MAGNESIUM OXIDE [Concomitant]
     Route: 048
     Dates: start: 20080716, end: 20080716
  5. MAGNESIUM OXIDE [Concomitant]
     Route: 048
     Dates: start: 20080721, end: 20080721
  6. NEGMIN GARGLE [Concomitant]
     Indication: PROPHYLAXIS
     Route: 049
     Dates: start: 20080719
  7. AZUNOL GARGLE LIQUID [Concomitant]
     Indication: PROPHYLAXIS
     Route: 049
     Dates: start: 20080724
  8. XYLOCAINE [Concomitant]
     Indication: PROPHYLAXIS
     Route: 049
     Dates: start: 20080724
  9. WATER,PURIFIED [Concomitant]
     Indication: PROPHYLAXIS
     Route: 049
     Dates: start: 20080724
  10. SELTOUCH [Concomitant]
     Indication: FALL
     Route: 062
     Dates: start: 20080724, end: 20080724
  11. VOLMAGEN [Concomitant]
     Indication: FALL
     Route: 054
     Dates: start: 20080724, end: 20080724

REACTIONS (9)
  - ACIDOSIS [None]
  - CONVULSION [None]
  - DEATH [None]
  - FACE OEDEMA [None]
  - HYPERTENSION [None]
  - HYPOGLYCAEMIA [None]
  - LOSS OF CONSCIOUSNESS [None]
  - MALAISE [None]
  - RASH [None]
